FAERS Safety Report 12115472 (Version 2)
Quarter: 2016Q4

REPORT INFORMATION
  Report Type: Spontaneous
  Country: US (occurrence: US)
  Receive Date: 20160225
  Receipt Date: 20161122
  Transmission Date: 20170206
  Serious: No
  Sender: FDA-Public Use
  Company Number: US-MYLANLABS-2015M1042789

PATIENT
  Sex: Female

DRUGS (1)
  1. ALPRAZOLAM. [Suspect]
     Active Substance: ALPRAZOLAM
     Dosage: UNK
     Route: 065

REACTIONS (2)
  - Drug ineffective [Unknown]
  - Headache [Unknown]
